FAERS Safety Report 5812656-7 (Version None)
Quarter: 2008Q3

REPORT INFORMATION
  Report Type: 
  Country: None (occurrence: None)
  Receive Date: 20080711
  Receipt Date: 20080703
  Transmission Date: 20090109
  Serious: Yes (Hospitalization, Disabling)
  Sender: FDA-Public Use
  Company Number: WAES 0705USA01431

PATIENT
  Age: 74 Year
  Sex: Female

DRUGS (1)
  1. FOSAMAX [Suspect]
     Indication: OSTEOPENIA
     Dosage: PO
     Route: 048
     Dates: start: 19960101, end: 19970301

REACTIONS (16)
  - ARTIFICIAL CROWN PROCEDURE [None]
  - CHOLECYSTECTOMY [None]
  - CHOLECYSTITIS [None]
  - DEAFNESS [None]
  - DEAFNESS NEUROSENSORY [None]
  - DYSPEPSIA [None]
  - GINGIVAL INFECTION [None]
  - INFECTION [None]
  - NAUSEA [None]
  - PAIN IN JAW [None]
  - PANCREATITIS [None]
  - RESORPTION BONE INCREASED [None]
  - TOOTH LOSS [None]
  - TRANSIENT ISCHAEMIC ATTACK [None]
  - VERTIGO [None]
  - VOMITING [None]
